FAERS Safety Report 23472950 (Version 1)
Quarter: 2024Q1

REPORT INFORMATION
  Report Type: Spontaneous
  Country: US (occurrence: US)
  Receive Date: 20240203
  Receipt Date: 20240203
  Transmission Date: 20240410
  Serious: Yes (Other)
  Sender: FDA-Public Use
  Company Number: US-Korea IPSEN-2024-01729

PATIENT
  Age: 51 Year
  Sex: Female

DRUGS (3)
  1. DYSPORT [Suspect]
     Active Substance: ABOBOTULINUMTOXINA
     Indication: Skin cosmetic procedure
     Dosage: INJECTED 9 UNITS TO THE MENTALIS, 4 UNITS TO THE DAO, 6 UNITS TO THE ORBICULARIS ORIS AND 42 ?UNITS
     Route: 065
     Dates: start: 20240116, end: 20240116
  2. DYSPORT [Suspect]
     Active Substance: ABOBOTULINUMTOXINA
     Indication: Skin wrinkling
  3. DYSPORT [Suspect]
     Active Substance: ABOBOTULINUMTOXINA
     Indication: Off label use

REACTIONS (4)
  - Neuromuscular toxicity [Not Recovered/Not Resolved]
  - Facial paresis [Not Recovered/Not Resolved]
  - Off label use [Unknown]
  - Product preparation issue [Unknown]

NARRATIVE: CASE EVENT DATE: 20240116
